FAERS Safety Report 6051781-5 (Version None)
Quarter: 2009Q1

REPORT INFORMATION
  Report Type: 
  Country: None (occurrence: None)
  Receive Date: 20090126
  Receipt Date: 20090114
  Transmission Date: 20090719
  Serious: Yes (Hospitalization)
  Sender: FDA-Public Use
  Company Number: PHHY2009FR01466

PATIENT
  Sex: Female

DRUGS (3)
  1. VISKEN [Suspect]
     Dosage: 5 MG, BID
     Route: 048
     Dates: start: 20081201, end: 20081210
  2. NOOTROPYL [Suspect]
     Dosage: 1200 MG, QD
     Route: 048
     Dates: start: 20081015, end: 20081215
  3. COOLMETEC [Suspect]
     Dosage: 20MG/ 25 MG, QD
     Route: 048
     Dates: start: 20081201, end: 20081210

REACTIONS (3)
  - DIZZINESS [None]
  - HEADACHE [None]
  - MYOCLONUS [None]
